FAERS Safety Report 14812714 (Version 1)
Quarter: 2018Q2

REPORT INFORMATION
  Report Type: Spontaneous
  Country: US (occurrence: US)
  Receive Date: 20180425
  Receipt Date: 20180425
  Transmission Date: 20180711
  Serious: Yes (Other)
  Sender: FDA-Public Use
  Company Number: PHHY2018US065398

PATIENT
  Age: 61 Year
  Sex: Male

DRUGS (1)
  1. VALACICLOVIR [Suspect]
     Active Substance: VALACYCLOVIR HYDROCHLORIDE
     Indication: VARICELLA ZOSTER VIRUS INFECTION
     Dosage: 2 G, TID
     Route: 048

REACTIONS (6)
  - Visual impairment [Unknown]
  - Vitritis [Recovering/Resolving]
  - Iridocyclitis [Unknown]
  - Necrotising retinitis [Unknown]
  - Retinal detachment [Unknown]
  - Eye pain [Unknown]
